FAERS Safety Report 13864399 (Version 2)
Quarter: 2017Q3

REPORT INFORMATION
  Report Type: Report from Study
  Country: None (occurrence: GB)
  Receive Date: 20170814
  Receipt Date: 20170915
  Transmission Date: 20171127
  Serious: Yes (Other)
  Sender: FDA-Public Use
  Company Number: GB-ABBVIE-17K-167-2066702-00

PATIENT
  Sex: Female

DRUGS (1)
  1. DUODOPA [Suspect]
     Active Substance: CARBIDOPA\LEVODOPA
     Indication: PARKINSON^S DISEASE
     Dosage: 100ML CASSETTE
     Route: 050

REACTIONS (6)
  - Bedridden [Unknown]
  - Pyrexia [Unknown]
  - Stoma site discharge [Unknown]
  - Stoma site erythema [Unknown]
  - Stoma site inflammation [Recovering/Resolving]
  - Stoma site inflammation [Unknown]
